FAERS Safety Report 17967474 (Version 1)
Quarter: 2020Q3

REPORT INFORMATION
  Report Type: Spontaneous
  Country: US (occurrence: US)
  Receive Date: 20200701
  Receipt Date: 20200701
  Transmission Date: 20201103
  Serious: Yes (Hospitalization, Other)
  Sender: FDA-Public Use
  Company Number: US-DRREDDYS-USA/USA/20/0124519

PATIENT
  Age: 67 Year
  Sex: Male

DRUGS (2)
  1. FLUCONAZOLE INJECTION [Suspect]
     Active Substance: FLUCONAZOLE
     Indication: ANTIFUNGAL PROPHYLAXIS
     Route: 042
  2. AMPHOTERICIN B LIPID COMPLEX [Concomitant]
     Active Substance: AMPHOTERICIN B
     Indication: ANTIFUNGAL PROPHYLAXIS
     Route: 055

REACTIONS (2)
  - Condition aggravated [Unknown]
  - Hepatic function abnormal [Unknown]
